FAERS Safety Report 11157476 (Version 1)
Quarter: 2015Q2

REPORT INFORMATION
  Report Type: Spontaneous
  Country: US (occurrence: US)
  Receive Date: 20150603
  Receipt Date: 20150603
  Transmission Date: 20150821
  Serious: Yes (Other)
  Sender: FDA-Public Use
  Company Number: US-009507513-1506USA000016

PATIENT
  Age: 66 Year
  Sex: Male

DRUGS (2)
  1. ZOCOR [Suspect]
     Active Substance: SIMVASTATIN
     Indication: PREMEDICATION
     Dosage: UNK
     Route: 048
     Dates: start: 2008
  2. ZOCOR [Suspect]
     Active Substance: SIMVASTATIN
     Indication: CARDIAC DISORDER

REACTIONS (6)
  - Rhabdomyolysis [Unknown]
  - Muscle atrophy [Unknown]
  - Androgen deficiency [Unknown]
  - Liver disorder [Unknown]
  - Gait disturbance [Not Recovered/Not Resolved]
  - Diabetes mellitus [Unknown]

NARRATIVE: CASE EVENT DATE: 2008
